FAERS Safety Report 18071173 (Version 2)
Quarter: 2020Q3

REPORT INFORMATION
  Report Type: Spontaneous
  Country: US (occurrence: US)
  Receive Date: 20200727
  Receipt Date: 20200916
  Transmission Date: 20201103
  Serious: Yes (Other)
  Sender: FDA-Public Use
  Company Number: US-AUROBINDO-AUR-APL-2020-036282

PATIENT

DRUGS (1)
  1. DEXAMFETAMINE 10MG [Suspect]
     Active Substance: DEXTROAMPHETAMINE
     Indication: ATTENTION DEFICIT HYPERACTIVITY DISORDER
     Dosage: 10 MILLIGRAM
     Route: 065
     Dates: start: 202007

REACTIONS (10)
  - Feeling abnormal [Unknown]
  - Suicidal ideation [Unknown]
  - Depression [Unknown]
  - Crying [Unknown]
  - Tremor [Unknown]
  - Loss of personal independence in daily activities [Unknown]
  - Fatigue [Unknown]
  - Product substitution issue [Unknown]
  - Drug ineffective [Unknown]
  - Disturbance in attention [Unknown]

NARRATIVE: CASE EVENT DATE: 202006
